FAERS Safety Report 16565021 (Version 1)
Quarter: 2019Q3

REPORT INFORMATION
  Report Type: Spontaneous
  Country: PT (occurrence: PT)
  Receive Date: 20190712
  Receipt Date: 20190712
  Transmission Date: 20191004
  Serious: Yes (Disabling)
  Sender: FDA-Public Use
  Company Number: PT-ACCORD-138199

PATIENT
  Age: 82 Year
  Sex: Female

DRUGS (2)
  1. LEXOTAN [Concomitant]
     Active Substance: BROMAZEPAM
     Dosage: 1 / 2 TABLET/ DAY
     Route: 048
  2. SERTRALINE [Suspect]
     Active Substance: SERTRALINE HYDROCHLORIDE
     Indication: ANXIETY
     Route: 048

REACTIONS (1)
  - Dysgeusia [Not Recovered/Not Resolved]

NARRATIVE: CASE EVENT DATE: 2019
